FAERS Safety Report 9113301 (Version 1)
Quarter: 2013Q1

REPORT INFORMATION
  Report Type: Spontaneous
  Country: RO (occurrence: RO)
  Receive Date: 20130131
  Receipt Date: 20130131
  Transmission Date: 20140127
  Serious: Yes (Other)
  Sender: FDA-Public Use
  Company Number: RO-ASTRAZENECA-2013SE05188

PATIENT
  Age: 70 Year
  Sex: Female
  Weight: 74 kg

DRUGS (7)
  1. ATACAND [Suspect]
     Indication: HYPERTENSION
     Route: 048
     Dates: start: 2010, end: 20121227
  2. NEBILET [Concomitant]
     Route: 048
     Dates: start: 2010
  3. TERTENSIF [Concomitant]
     Route: 048
     Dates: start: 2010
  4. BETALOC ZOK [Concomitant]
     Route: 048
     Dates: start: 2010
  5. TANAKAN [Concomitant]
     Route: 048
     Dates: start: 2010
  6. DIAZEPAM [Concomitant]
  7. BETASERC [Concomitant]
     Route: 048
     Dates: start: 2010

REACTIONS (4)
  - Tremor [Recovered/Resolved]
  - Agitation [Recovered/Resolved]
  - Drug ineffective [Recovered/Resolved]
  - Hypertension [Recovered/Resolved]
